FAERS Safety Report 7218891-8 (Version None)
Quarter: 2011Q1

REPORT INFORMATION
  Report Type: 
  Country: None (occurrence: None)
  Receive Date: 20110110
  Receipt Date: 20110105
  Transmission Date: 20110831
  Serious: Yes (Death, Other)
  Sender: FDA-Public Use
  Company Number: US-MERCK-1009USA03227

PATIENT
  Age: 24 Year
  Sex: Female

DRUGS (3)
  1. ISENTRESS [Suspect]
     Indication: HIV TEST POSITIVE
     Route: 048
  2. INTELENCE [Suspect]
     Route: 048
  3. EPZICOM [Suspect]
     Indication: HIV INFECTION
     Route: 048

REACTIONS (4)
  - DEATH [None]
  - DISSEMINATED INTRAVASCULAR COAGULATION [None]
  - HAEMORRHAGE [None]
  - DRUG EXPOSURE DURING PREGNANCY [None]
